FAERS Safety Report 10377024 (Version 3)
Quarter: 2019Q3

REPORT INFORMATION
  Report Type: Spontaneous
  Country: US (occurrence: US)
  Receive Date: 20140812
  Receipt Date: 20190723
  Transmission Date: 20191004
  Serious: Yes (Hospitalization, Other)
  Sender: FDA-Public Use
  Company Number: US-SA-2014SA106109

PATIENT
  Age: 66 Year
  Sex: Male

DRUGS (1)
  1. ALEMTUZUMAB [Suspect]
     Active Substance: ALEMTUZUMAB
     Indication: LYMPHOCYTIC LYMPHOMA
     Dosage: 3 MG
     Route: 065

REACTIONS (9)
  - Nausea [Recovering/Resolving]
  - Hyperhidrosis [Recovering/Resolving]
  - Acute myocardial infarction [Recovering/Resolving]
  - Tachycardia [Recovering/Resolving]
  - Electrocardiogram QT prolonged [Recovered/Resolved]
  - Vomiting [Recovering/Resolving]
  - Ejection fraction decreased [Not Recovered/Not Resolved]
  - Chills [Recovering/Resolving]
  - Electrocardiogram T wave inversion [Recovered/Resolved]
